FAERS Safety Report 4618335-6 (Version None)
Quarter: 2005Q1

REPORT INFORMATION
  Report Type: 
  Country: None (occurrence: None)
  Receive Date: 20050323
  Receipt Date: 20050315
  Transmission Date: 20050727
  Serious: No
  Sender: FDA-Public Use
  Company Number: 2005GB00534

PATIENT
  Age: 52 Year
  Sex: Male
  Weight: 74 kg

DRUGS (4)
  1. CRESTOR [Suspect]
     Indication: LIPIDS INCREASED
     Dosage: 10 MG PO
     Route: 048
     Dates: start: 20050118, end: 20050303
  2. CRESTOR [Suspect]
     Indication: MYOCARDIAL ISCHAEMIA
     Dosage: 10 MG PO
     Route: 048
     Dates: start: 20050118, end: 20050303
  3. AMLODIPINE [Concomitant]
  4. ASPIRIN [Concomitant]

REACTIONS (5)
  - CEREBROVASCULAR ACCIDENT [None]
  - INSOMNIA [None]
  - LETHARGY [None]
  - MYALGIA [None]
  - PARKINSONISM [None]
